FAERS Safety Report 12521256 (Version 1)
Quarter: 2016Q3

REPORT INFORMATION
  Report Type: Spontaneous
  Country: CN (occurrence: CN)
  Receive Date: 20160701
  Receipt Date: 20160701
  Transmission Date: 20161109
  Serious: Yes (Other)
  Sender: FDA-Public Use
  Company Number: CN-BAXTER-2016BAX033932

PATIENT
  Age: 60 Year
  Sex: Female
  Weight: 53 kg

DRUGS (8)
  1. 0.9% SODIUM CHLORIDE INJECTION [Suspect]
     Active Substance: SODIUM CHLORIDE
     Route: 065
     Dates: start: 20150919, end: 20150927
  2. 20% MANNITOL INJECTION [Suspect]
     Active Substance: MANNITOL
     Indication: SWELLING
     Route: 041
     Dates: start: 20150919, end: 20150927
  3. ALPROSTADIL. [Suspect]
     Active Substance: ALPROSTADIL
     Indication: CARDIOVASCULAR DISORDER
     Dosage: 2 VIAL
     Route: 041
     Dates: start: 20150922, end: 20150927
  4. CERVUS AND CUCUMIS POLYPEPTIDE [Suspect]
     Active Substance: POLYPEPTIDES
     Indication: PRODUCT USED FOR UNKNOWN INDICATION
     Dosage: 2 VIALS
     Route: 065
     Dates: start: 20150919, end: 20150927
  5. 0.9% SODIUM CHLORIDE INJECTION [Suspect]
     Active Substance: SODIUM CHLORIDE
     Indication: MEDICATION DILUTION
     Route: 065
     Dates: start: 20150919
  6. CERVUS AND CUCUMIS POLYPEPTIDE [Suspect]
     Active Substance: POLYPEPTIDES
     Route: 065
     Dates: start: 20150929
  7. 0.9% SODIUM CHLORIDE INJECTION [Suspect]
     Active Substance: SODIUM CHLORIDE
     Route: 041
     Dates: start: 20150922, end: 20150927
  8. PANTOPRAZOLE [Suspect]
     Active Substance: PANTOPRAZOLE SODIUM
     Indication: PRODUCT USED FOR UNKNOWN INDICATION
     Route: 065
     Dates: start: 20150919

REACTIONS (3)
  - Pruritus [Recovered/Resolved]
  - Urticaria [Recovered/Resolved]
  - Condition aggravated [Recovered/Resolved]

NARRATIVE: CASE EVENT DATE: 20150926
